FAERS Safety Report 5673753-2 (Version None)
Quarter: 2008Q1

REPORT INFORMATION
  Report Type: 
  Country: None (occurrence: None)
  Receive Date: 20080319
  Receipt Date: 20080307
  Transmission Date: 20080703
  Serious: Yes (Other)
  Sender: FDA-Public Use
  Company Number: CA-PFIZER INC-2008017671

PATIENT
  Sex: Female
  Weight: 50.2 kg

DRUGS (2)
  1. PREGABALIN [Suspect]
     Indication: CONVULSION
     Dosage: TEXT:150-255MG
     Route: 048
  2. DILANTIN [Concomitant]

REACTIONS (1)
  - ABORTION SPONTANEOUS [None]
